FAERS Safety Report 16223666 (Version 3)
Quarter: 2020Q1

REPORT INFORMATION
  Report Type: Report from Study
  Country: EG (occurrence: EG)
  Receive Date: 20190422
  Receipt Date: 20200109
  Transmission Date: 20200409
  Serious: Yes (Other)
  Sender: FDA-Public Use
  Company Number: PHHY2019EG088490

PATIENT
  Age: 43 Year
  Sex: Female

DRUGS (1)
  1. TASIGNA [Suspect]
     Active Substance: NILOTINIB
     Indication: CHRONIC MYELOID LEUKAEMIA
     Dosage: 400 MG, BID
     Route: 048
     Dates: start: 2014, end: 201907

REACTIONS (9)
  - Cytogenetic analysis abnormal [Recovering/Resolving]
  - Drug ineffective [Unknown]
  - Fatigue [Recovered/Resolved]
  - Thrombosis [Recovered/Resolved]
  - Sinusitis [Not Recovered/Not Resolved]
  - Dyspnoea [Recovered/Resolved]
  - Splenomegaly [Recovered/Resolved]
  - Gait disturbance [Recovered/Resolved]
  - Eye inflammation [Recovered/Resolved]

NARRATIVE: CASE EVENT DATE: 2014
